FAERS Safety Report 4361438-4 (Version None)
Quarter: 2004Q2

REPORT INFORMATION
  Report Type: 
  Country: None (occurrence: None)
  Receive Date: 20040521
  Receipt Date: 20000302
  Transmission Date: 20050107
  Serious: No
  Sender: FDA-Public Use
  Company Number: US-GLAXOSMITHKLINE-A0114981A

PATIENT
  Age: 60 Year
  Sex: Female

DRUGS (3)
  1. ZYBAN [Suspect]
     Route: 048
  2. M.V.I. [Concomitant]
  3. TAMOXIFEN CITRATE [Concomitant]

REACTIONS (3)
  - DRUG INEFFECTIVE [None]
  - DRY MOUTH [None]
  - NAUSEA [None]
